FAERS Safety Report 15944650 (Version 1)
Quarter: 2019Q1

REPORT INFORMATION
  Report Type: Spontaneous
  Country: US (occurrence: US)
  Receive Date: 20190211
  Receipt Date: 20190211
  Transmission Date: 20190417
  Serious: Yes (Disabling)
  Sender: FDA-Public Use
  Company Number: None

PATIENT
  Age: 69 Year
  Sex: Female
  Weight: 99 kg

DRUGS (15)
  1. MAGNESIUM [Concomitant]
     Active Substance: MAGNESIUM
  2. VITAMIN B12 [Concomitant]
     Active Substance: CYANOCOBALAMIN
  3. DESSICATED LIVER [Concomitant]
  4. SAMBUCOL BLACK ELDERBERRY [Concomitant]
  5. FORSKHOLII [Concomitant]
  6. IBUPROFEN. [Concomitant]
     Active Substance: IBUPROFEN
  7. LEVAQUIN [Suspect]
     Active Substance: LEVOFLOXACIN
     Indication: PNEUMONIA
     Dosage: ?          QUANTITY:1 INJECTION(S);?
     Route: 042
     Dates: start: 20180813, end: 20180815
  8. ACTIVATED COCONUT CHARCOAL [Concomitant]
  9. POTASSIUM [Concomitant]
     Active Substance: POTASSIUM
  10. VITAMIN A [Concomitant]
     Active Substance: VITAMIN A
  11. PSYLLIUM WHOLE HUSK [Concomitant]
  12. VITAMIN D3 [Concomitant]
     Active Substance: CHOLECALCIFEROL
  13. FISH OIL [Concomitant]
     Active Substance: FISH OIL
  14. VITAMIN C [Concomitant]
     Active Substance: ASCORBIC ACID
  15. MELATONIN [Concomitant]
     Active Substance: MELATONIN

REACTIONS (7)
  - Hypoaesthesia [None]
  - Myalgia [None]
  - Arthralgia [None]
  - Pain in extremity [None]
  - Infusion site pain [None]
  - Musculoskeletal pain [None]
  - Paraesthesia [None]

NARRATIVE: CASE EVENT DATE: 20180818
